FAERS Safety Report 9355997 (Version 2)
Quarter: 2013Q3

REPORT INFORMATION
  Report Type: Spontaneous
  Country: US (occurrence: US)
  Receive Date: 20130619
  Receipt Date: 20130903
  Transmission Date: 20140515
  Serious: Yes (Hospitalization, Other)
  Sender: FDA-Public Use
  Company Number: US-BAYER-2013-075462

PATIENT
  Age: 68 Year
  Sex: Female
  Weight: 76.2 kg

DRUGS (15)
  1. XARELTO [Suspect]
     Indication: CEREBROVASCULAR ACCIDENT PROPHYLAXIS
     Dosage: 15 MG, QD
     Route: 048
     Dates: start: 201305, end: 20130606
  2. XARELTO [Interacting]
     Indication: ATRIAL FIBRILLATION
  3. BABY ASPIRIN [Interacting]
     Indication: CARDIAC DISORDER
     Dosage: 81 MG, QD
     Route: 048
     Dates: start: 2012
  4. LOPRESSOR [Concomitant]
     Indication: HEART RATE DECREASED
     Dosage: 25 MG, UNK
     Route: 048
     Dates: start: 201305
  5. ALLOPURINOL [Concomitant]
     Indication: GOUT
     Dosage: 100 MG, BID
     Route: 048
     Dates: start: 2011
  6. ALLOPURINOL [Concomitant]
     Indication: RENAL DISORDER
  7. ALLOPURINOL [Concomitant]
     Indication: GASTRIC DISORDER
  8. LOSARTAN [Concomitant]
     Indication: BLOOD PRESSURE ABNORMAL
     Dosage: 25 MG, QD
     Route: 048
     Dates: start: 2011
  9. ZOCOR [Concomitant]
     Indication: BLOOD CHOLESTEROL ABNORMAL
     Dosage: 40 MG, BID
     Route: 048
  10. LASIX [Concomitant]
     Indication: CARDIAC FAILURE CONGESTIVE
     Dosage: 60 MG, QD
     Route: 048
  11. LASIX [Concomitant]
     Indication: DIURETIC THERAPY
  12. LASIX [Concomitant]
     Indication: CARDIAC FAILURE CONGESTIVE
  13. BACID [Concomitant]
     Indication: GASTRIC DISORDER
     Dosage: 100 MG, BID
     Route: 048
  14. METOPROLOL [Concomitant]
     Dosage: 50 MG, BID
     Route: 065
  15. VITAMIN C [Concomitant]
     Dosage: 500 MG, QD
     Route: 065

REACTIONS (9)
  - Diarrhoea haemorrhagic [Not Recovered/Not Resolved]
  - Haemorrhoidal haemorrhage [Recovering/Resolving]
  - Rectal haemorrhage [Recovering/Resolving]
  - Contusion [Recovering/Resolving]
  - Weight decreased [Not Recovered/Not Resolved]
  - Decreased appetite [Not Recovered/Not Resolved]
  - Asthenia [Recovering/Resolving]
  - Activities of daily living impaired [Recovering/Resolving]
  - Diarrhoea [Not Recovered/Not Resolved]
